FAERS Safety Report 7408929-7 (Version None)
Quarter: 2011Q2

REPORT INFORMATION
  Report Type: 
  Country: None (occurrence: None)
  Receive Date: 20110412
  Receipt Date: 20110405
  Transmission Date: 20111010
  Serious: Yes (Life-Threatening, Hospitalization)
  Sender: FDA-Public Use
  Company Number: AU-AMGEN-AUSSP2010007693

PATIENT
  Age: 49 Year
  Sex: Female
  Weight: 55 kg

DRUGS (4)
  1. ADRIAMYCIN PFS [Suspect]
     Dosage: 80 MG, UNK
     Dates: start: 20101124, end: 20101124
  2. NEULASTA [Suspect]
     Indication: CHEMOTHERAPY
     Dosage: 6 MG, ONE TIME DOSE
     Route: 058
     Dates: end: 20101124
  3. CYCLOPHOSPHAMIDE [Suspect]
     Dosage: 800 MG, UNK
     Dates: start: 20101124, end: 20101124
  4. TAXOTERE [Suspect]
     Dosage: 120 MG, UNK
     Dates: start: 20101124, end: 20101124

REACTIONS (1)
  - NEUTROPENIC SEPSIS [None]
